FAERS Safety Report 8100639-6 (Version None)
Quarter: 2012Q1

REPORT INFORMATION
  Report Type: 
  Country: None (occurrence: None)
  Receive Date: 20120131
  Receipt Date: 20120125
  Transmission Date: 20120608
  Serious: Yes (Death, Other)
  Sender: FDA-Public Use
  Company Number: JP-PFIZER INC-2011295409

PATIENT
  Age: 74 Year
  Sex: Female

DRUGS (2)
  1. VFEND [Suspect]
     Dosage: 400 MG/DAY
     Route: 048
     Dates: start: 20111116
  2. VFEND [Suspect]
     Indication: SYSTEMIC CANDIDA
     Dosage: 400 MG/DAY
     Route: 042
     Dates: start: 20111109, end: 20111115

REACTIONS (4)
  - SHOCK HAEMORRHAGIC [None]
  - HEPATIC FUNCTION ABNORMAL [None]
  - DECREASED APPETITE [None]
  - TREMOR [None]
